FAERS Safety Report 23813783 (Version 1)
Quarter: 2024Q2

REPORT INFORMATION
  Report Type: Spontaneous
  Country: CA (occurrence: CA)
  Receive Date: 20240503
  Receipt Date: 20240503
  Transmission Date: 20240716
  Serious: Yes (Hospitalization)
  Sender: FDA-Public Use
  Company Number: CA-HALEON-2170848

PATIENT

DRUGS (1)
  1. OXYMETAZOLINE HYDROCHLORIDE [Suspect]
     Active Substance: OXYMETAZOLINE HYDROCHLORIDE
     Indication: Nasal obstruction

REACTIONS (3)
  - Presyncope [Unknown]
  - Application site pain [Unknown]
  - Impaired work ability [Unknown]
